FAERS Safety Report 9435395 (Version 1)
Quarter: 2013Q3

REPORT INFORMATION
  Report Type: Spontaneous
  Country: JP (occurrence: JP)
  Receive Date: 20130801
  Receipt Date: 20130801
  Transmission Date: 20140515
  Serious: Yes (Hospitalization, Other)
  Sender: FDA-Public Use
  Company Number: JP-JNJFOC-20130717253

PATIENT
  Age: 16 Year
  Sex: Male
  Weight: 30 kg

DRUGS (3)
  1. REMICADE [Suspect]
     Indication: RHEUMATOID ARTHRITIS
     Route: 042
  2. REMICADE [Suspect]
     Indication: RHEUMATOID ARTHRITIS
     Route: 042
     Dates: start: 201212
  3. METHOTREXATE [Concomitant]
     Route: 048
     Dates: end: 201305

REACTIONS (2)
  - Latent tuberculosis [Not Recovered/Not Resolved]
  - Depression [Unknown]
